FAERS Safety Report 7168231-8 (Version None)
Quarter: 2010Q4

REPORT INFORMATION
  Report Type: 
  Country: None (occurrence: None)
  Receive Date: 20101216
  Receipt Date: 20101210
  Transmission Date: 20110411
  Serious: Yes (Other)
  Sender: FDA-Public Use
  Company Number: US-ALLERGAN-1016042US

PATIENT
  Age: 79 Year
  Sex: Female

DRUGS (1)
  1. BOTOXA? [Suspect]
     Indication: MIGRAINE
     Dosage: 160 UNITS, SINGLE
     Route: 030
     Dates: start: 20101209, end: 20101209

REACTIONS (1)
  - DYSURIA [None]
